FAERS Safety Report 23526953 (Version 3)
Quarter: 2024Q1

REPORT INFORMATION
  Report Type: Spontaneous
  Country: GB (occurrence: GB)
  Receive Date: 20240215
  Receipt Date: 20240320
  Transmission Date: 20240410
  Serious: Yes (Hospitalization, Other)
  Sender: FDA-Public Use
  Company Number: GB-MYLANLABS-2024M1013093

PATIENT
  Age: 47 Year
  Sex: Male

DRUGS (1)
  1. CLOZARIL [Suspect]
     Active Substance: CLOZAPINE
     Indication: Schizophrenia
     Dosage: UNK
     Route: 048
     Dates: start: 20170927

REACTIONS (8)
  - Hospitalisation [Unknown]
  - Acute oesophageal mucosal lesion [Unknown]
  - Thrombocytosis [Not Recovered/Not Resolved]
  - Renal impairment [Unknown]
  - Pneumonia [Not Recovered/Not Resolved]
  - Anaemia [Not Recovered/Not Resolved]
  - Rouleaux formation [Unknown]
  - Neutrophil toxic granulation present [Unknown]

NARRATIVE: CASE EVENT DATE: 20240206
